FAERS Safety Report 6955658-X (Version None)
Quarter: 2010Q3

REPORT INFORMATION
  Report Type: 
  Country: None (occurrence: None)
  Receive Date: 20100830
  Receipt Date: 20100823
  Transmission Date: 20110219
  Serious: Yes (Death)
  Sender: FDA-Public Use
  Company Number: US-TEVA-246173USA

PATIENT
  Age: 45 Year
  Sex: Female

DRUGS (2)
  1. BACLOFEN [Suspect]
  2. DULOXETINE HYDROCHLORIDE [Suspect]

REACTIONS (1)
  - DRUG TOXICITY [None]
